FAERS Safety Report 17294355 (Version 1)
Quarter: 2020Q1

REPORT INFORMATION
  Report Type: Spontaneous
  Country: US (occurrence: US)
  Receive Date: 20200120
  Receipt Date: 20200120
  Transmission Date: 20200409
  Serious: Yes (Other)
  Sender: FDA-Public Use
  Company Number: None

PATIENT
  Age: 30 Year
  Sex: Male
  Weight: 68.04 kg

DRUGS (2)
  1. ARIPIPRAZOLE. [Suspect]
     Active Substance: ARIPIPRAZOLE
     Indication: PSYCHOTIC DISORDER
     Route: 048
     Dates: start: 20200117, end: 20200117
  2. LITHIUM 600 MG PO BID [Concomitant]
     Dates: start: 20200117

REACTIONS (3)
  - Joint stiffness [None]
  - Throat tightness [None]
  - Swollen tongue [None]

NARRATIVE: CASE EVENT DATE: 20200117
